FAERS Safety Report 19905875 (Version 2)
Quarter: 2021Q4

REPORT INFORMATION
  Report Type: Report from Study
  Country: MA (occurrence: MA)
  Receive Date: 20210930
  Receipt Date: 20211009
  Transmission Date: 20220303
  Serious: Yes (Death, Other)
  Sender: FDA-Public Use
  Company Number: NVSC2021MA220716

PATIENT
  Age: 63 Year
  Sex: Female

DRUGS (1)
  1. KISQALI [Suspect]
     Active Substance: RIBOCICLIB
     Indication: Breast cancer
     Dosage: 200 MG, TID
     Route: 048
     Dates: start: 20210215

REACTIONS (11)
  - Death [Fatal]
  - Cerebral vascular occlusion [Unknown]
  - Coma [Unknown]
  - Angiopathy [Unknown]
  - Bone disorder [Unknown]
  - Liver disorder [Unknown]
  - Fall [Unknown]
  - Memory impairment [Unknown]
  - Tumour marker increased [Unknown]
  - Inappropriate schedule of product administration [Unknown]
  - Drug ineffective [Unknown]

NARRATIVE: CASE EVENT DATE: 20210215
